FAERS Safety Report 20350114 (Version 2)
Quarter: 2022Q1

REPORT INFORMATION
  Report Type: Spontaneous
  Country: CN (occurrence: CN)
  Receive Date: 20220119
  Receipt Date: 20220120
  Transmission Date: 20220423
  Serious: Yes (Hospitalization, Other)
  Sender: FDA-Public Use
  Company Number: CN-PFIZER INC-202200040789

PATIENT
  Age: 27 Year
  Sex: Female

DRUGS (6)
  1. VENLAFAXINE HCL [Suspect]
     Active Substance: VENLAFAXINE HYDROCHLORIDE
     Indication: Depression
     Dosage: 50 MG, 1X/DAY
     Route: 048
     Dates: start: 20210309, end: 20210319
  2. VENLAFAXINE HCL [Suspect]
     Active Substance: VENLAFAXINE HYDROCHLORIDE
     Dosage: 225 MG, 1X/DAY
     Route: 048
     Dates: start: 20210319
  3. LORAZEPAM [Concomitant]
     Active Substance: LORAZEPAM
     Indication: Anxiety
     Dosage: 1 MG,  (EVERY NIGHT)
     Route: 048
  4. LORAZEPAM [Concomitant]
     Active Substance: LORAZEPAM
     Indication: Dyssomnia
  5. ZOLPIDEM TARTRATE [Concomitant]
     Active Substance: ZOLPIDEM TARTRATE
     Indication: Anxiety
     Dosage: 10 MG,  (EVERY NIGHT)
     Route: 048
  6. ZOLPIDEM TARTRATE [Concomitant]
     Active Substance: ZOLPIDEM TARTRATE
     Indication: Dyssomnia

REACTIONS (1)
  - Drug-induced liver injury [Recovered/Resolved]

NARRATIVE: CASE EVENT DATE: 20210414
